FAERS Safety Report 7839877-6 (Version None)
Quarter: 2011Q4

REPORT INFORMATION
  Report Type: 
  Country: None (occurrence: None)
  Receive Date: 20111025
  Receipt Date: 20111017
  Transmission Date: 20120403
  Serious: Yes (Hospitalization)
  Sender: FDA-Public Use
  Company Number: US-BIOGENIDEC-2010BI010275

PATIENT
  Age: 50 Year
  Sex: Female

DRUGS (2)
  1. AVONEX [Suspect]
     Indication: MULTIPLE SCLEROSIS
     Route: 030
     Dates: start: 20000403
  2. AVONEX [Suspect]
     Route: 030

REACTIONS (9)
  - ANAPHYLACTIC SHOCK [None]
  - MOBILITY DECREASED [None]
  - ARTHRALGIA [None]
  - MUSCLE RIGIDITY [None]
  - SURGERY [None]
  - PAIN IN EXTREMITY [None]
  - STAPHYLOCOCCAL INFECTION [None]
  - CATHETERISATION CARDIAC [None]
  - BACK PAIN [None]
